FAERS Safety Report 5614981-1 (Version None)
Quarter: 2008Q1

REPORT INFORMATION
  Report Type: 
  Country: None (occurrence: None)
  Receive Date: 20080206
  Receipt Date: 20080128
  Transmission Date: 20080703
  Serious: Yes (Hospitalization)
  Sender: FDA-Public Use
  Company Number: CL-ABBOTT-08P-034-0435434-00

PATIENT
  Sex: Male

DRUGS (5)
  1. KALETRA [Suspect]
     Indication: HIV INFECTION
     Dosage: 400/200, 800/400 MG
     Route: 048
     Dates: start: 20070817
  2. ZIDOVUDINE [Concomitant]
     Indication: HIV INFECTION
     Route: 048
     Dates: start: 20070817, end: 20071016
  3. LAMIVUDINE [Concomitant]
     Indication: HIV INFECTION
     Route: 048
     Dates: start: 20070817, end: 20071016
  4. NEVIRAPINE [Concomitant]
     Indication: HIV INFECTION
     Route: 048
     Dates: start: 20070817, end: 20071016
  5. SAQUINAVIR [Concomitant]
     Indication: HIV INFECTION
     Route: 048
     Dates: start: 20071016

REACTIONS (2)
  - ODYNOPHAGIA [None]
  - PNEUMONIA [None]
